FAERS Safety Report 15488330 (Version 1)
Quarter: 2018Q4

REPORT INFORMATION
  Report Type: Spontaneous
  Country: FR (occurrence: FR)
  Receive Date: 20181011
  Receipt Date: 20181011
  Transmission Date: 20190205
  Serious: Yes (Hospitalization)
  Sender: FDA-Public Use
  Company Number: FR-ASTRAZENECA-2018SF29440

PATIENT
  Age: 81 Year
  Sex: Male
  Weight: 88 kg

DRUGS (5)
  1. LOVENOX [Interacting]
     Active Substance: ENOXAPARIN SODIUM
     Indication: ACUTE CORONARY SYNDROME
     Route: 058
     Dates: start: 20180823, end: 20180828
  2. STIVARGA [Interacting]
     Active Substance: REGORAFENIB
     Indication: HEPATOCELLULAR CARCINOMA
     Route: 048
     Dates: start: 201802, end: 20180903
  3. BRILIQUE [Suspect]
     Active Substance: TICAGRELOR
     Indication: ACUTE CORONARY SYNDROME
     Route: 048
     Dates: start: 20180823
  4. HEPARINE SODIQUE [Interacting]
     Active Substance: HEPARIN SODIUM
     Indication: ANGIOPLASTY
     Route: 041
     Dates: start: 20180828, end: 20180828
  5. KARDEGIC [Interacting]
     Active Substance: ASPIRIN DL-LYSINE
     Indication: CARDIOVASCULAR INSUFFICIENCY
     Dosage: 1.0DF UNKNOWN
     Route: 048

REACTIONS (2)
  - Pericardial haemorrhage [Recovering/Resolving]
  - Drug interaction [Recovering/Resolving]

NARRATIVE: CASE EVENT DATE: 20180828
